FAERS Safety Report 12967165 (Version 2)
Quarter: 2017Q2

REPORT INFORMATION
  Report Type: Spontaneous
  Country: TW (occurrence: TW)
  Receive Date: 20161123
  Receipt Date: 20170505
  Transmission Date: 20170830
  Serious: Yes (Life-Threatening, Hospitalization, Disabling, Other)
  Sender: FDA-Public Use
  Company Number: TW-ACCORD-045641

PATIENT
  Age: 65 Year
  Sex: Male

DRUGS (3)
  1. FLUOROURACIL. [Suspect]
     Active Substance: FLUOROURACIL
     Indication: RECTAL CANCER RECURRENT
     Dosage: (1500 MG/M2) 2800 MG FOR 1 DAY
  2. OXALIPLATIN. [Suspect]
     Active Substance: OXALIPLATIN
     Indication: RECTAL CANCER RECURRENT
     Dosage: 160 MG (85 MG/M2)  FOR 1 DAY
  3. FOLINIC ACID [Suspect]
     Active Substance: LEUCOVORIN
     Indication: RECTAL CANCER RECURRENT

REACTIONS (9)
  - Toxicity to various agents [Recovered/Resolved]
  - Ventricular tachycardia [Unknown]
  - Ammonia increased [Recovered/Resolved]
  - Acute kidney injury [Unknown]
  - Venous thrombosis [Unknown]
  - Gangrene [Recovered/Resolved with Sequelae]
  - Peripheral ischaemia [Unknown]
  - Cardiogenic shock [Recovered/Resolved]
  - Tumour lysis syndrome [Recovered/Resolved]
